FAERS Safety Report 25063613 (Version 1)
Quarter: 2025Q1

REPORT INFORMATION
  Report Type: Spontaneous
  Country: US (occurrence: US)
  Receive Date: 20250311
  Receipt Date: 20250311
  Transmission Date: 20250408
  Serious: No
  Sender: PFIZER
  Company Number: US-PFIZER INC-PV202500028993

PATIENT

DRUGS (1)
  1. NIFEDIPINE [Suspect]
     Active Substance: NIFEDIPINE

REACTIONS (1)
  - Rash [Unknown]
